FAERS Safety Report 7117578-X (Version None)
Quarter: 2010Q4

REPORT INFORMATION
  Report Type: 
  Country: None (occurrence: None)
  Receive Date: 20101122
  Receipt Date: 20101105
  Transmission Date: 20110411
  Serious: Yes (Death)
  Sender: FDA-Public Use
  Company Number: DE-ABBOTT-10P-062-0686967-00

PATIENT
  Age: 83 Year
  Sex: Male

DRUGS (2)
  1. SIXANTONE [Suspect]
     Indication: PROSTATE CANCER
     Route: 058
     Dates: start: 20100223
  2. BICALUTAMIDE [Concomitant]
     Indication: PRODUCT USED FOR UNKNOWN INDICATION
     Dates: start: 20090528

REACTIONS (2)
  - MALIGNANT NEOPLASM PROGRESSION [None]
  - PROSTATE CANCER [None]
